FAERS Safety Report 6399558-5 (Version None)
Quarter: 2009Q4

REPORT INFORMATION
  Report Type: 
  Country: None (occurrence: None)
  Receive Date: 20091014
  Receipt Date: 20091008
  Transmission Date: 20100525
  Serious: Yes (Death)
  Sender: FDA-Public Use
  Company Number: CH-ASTRAZENECA-2009SE19259

PATIENT
  Age: 35 Year
  Sex: Male

DRUGS (12)
  1. SEROQUEL XR [Suspect]
     Route: 048
     Dates: start: 20090604, end: 20090608
  2. SEROQUEL XR [Suspect]
     Route: 048
     Dates: start: 20090609, end: 20090612
  3. RISPERDAL [Suspect]
     Route: 048
     Dates: start: 20090612, end: 20090614
  4. RISPERDAL [Suspect]
     Route: 048
     Dates: start: 20090615, end: 20090702
  5. RISPERDAL [Suspect]
     Route: 048
     Dates: start: 20090703, end: 20090707
  6. RISPERDAL [Suspect]
     Route: 048
     Dates: start: 20090708, end: 20090711
  7. RISPERDAL [Suspect]
     Route: 048
     Dates: start: 20090712, end: 20090812
  8. HALDOL [Suspect]
     Route: 048
     Dates: start: 20090807, end: 20090812
  9. HALDOL [Suspect]
     Route: 048
     Dates: start: 20090813, end: 20090817
  10. HALDOL [Suspect]
     Route: 048
     Dates: start: 20090818, end: 20090819
  11. HALDOL [Suspect]
     Route: 048
     Dates: start: 20090820, end: 20090820
  12. CIPRALEX [Suspect]
     Route: 048
     Dates: start: 20090820, end: 20090820

REACTIONS (1)
  - COMPLETED SUICIDE [None]
